FAERS Safety Report 19959384 (Version 1)
Quarter: 2021Q4

REPORT INFORMATION
  Report Type: Spontaneous
  Country: US (occurrence: US)
  Receive Date: 20211014
  Receipt Date: 20211014
  Transmission Date: 20220303
  Serious: Yes (Other)
  Sender: FDA-Public Use
  Company Number: None

PATIENT
  Age: 57 Year
  Sex: Female
  Weight: 83.25 kg

DRUGS (4)
  1. CHANTIX [Suspect]
     Active Substance: VARENICLINE TARTRATE
     Indication: Smoking cessation therapy
     Dosage: ?          QUANTITY:1 TABLET(S);
     Route: 048
     Dates: start: 20190723, end: 20190820
  2. WELLBUTRIN [Concomitant]
     Active Substance: BUPROPION HYDROCHLORIDE
  3. VITAMIN C [Concomitant]
     Active Substance: ASCORBIC ACID
  4. CLARITIN [Concomitant]
     Active Substance: LORATADINE

REACTIONS (2)
  - Nightmare [None]
  - Suicidal ideation [None]

NARRATIVE: CASE EVENT DATE: 20190724
